FAERS Safety Report 7805968-9 (Version None)
Quarter: 2011Q4

REPORT INFORMATION
  Report Type: 
  Country: None (occurrence: None)
  Receive Date: 20111011
  Receipt Date: 20110930
  Transmission Date: 20120403
  Serious: Yes (Other)
  Sender: FDA-Public Use
  Company Number: US-ELI_LILLY_AND_COMPANY-US201110000504

PATIENT
  Sex: Male

DRUGS (2)
  1. HUMULIN 70/30 [Suspect]
     Indication: DIABETES MELLITUS
     Dosage: SLIDING SCALE, BID
     Dates: start: 19990101
  2. HUMULIN 70/30 [Suspect]
     Dosage: SLIDING SCALE, BID
     Dates: start: 19990101

REACTIONS (1)
  - RENAL FAILURE [None]
